FAERS Safety Report 22094127 (Version 1)
Quarter: 2023Q1

REPORT INFORMATION
  Report Type: Spontaneous
  Country: US (occurrence: US)
  Receive Date: 20230314
  Receipt Date: 20230314
  Transmission Date: 20230418
  Serious: Yes (Other)
  Sender: FDA-Public Use
  Company Number: US-PERRIGO-23US003221

PATIENT
  Sex: Male
  Weight: 68.027 kg

DRUGS (23)
  1. POLYETHYLENE GLYCOL 3350 [Suspect]
     Active Substance: POLYETHYLENE GLYCOL 3350
     Indication: Frequent bowel movements
     Dosage: 17 G, BID
     Route: 048
     Dates: start: 20211117, end: 2023
  2. POLYETHYLENE GLYCOL 3350 [Suspect]
     Active Substance: POLYETHYLENE GLYCOL 3350
     Indication: Intestinal obstruction
     Dosage: 17 G, QD
     Route: 048
     Dates: start: 20210222, end: 20211116
  3. .ALPHA.-TOCOPHEROL [Concomitant]
     Active Substance: .ALPHA.-TOCOPHEROL
     Indication: Supplementation therapy
     Dosage: 180 MG, UNK
     Route: 065
     Dates: start: 2018
  4. MAGNESIUM OXIDE [Concomitant]
     Active Substance: MAGNESIUM OXIDE
     Indication: Supplementation therapy
     Dosage: 420 MG,UNK
     Route: 065
     Dates: start: 2008
  5. VITAMIN B2 PHOSPHATE [Concomitant]
     Indication: Supplementation therapy
     Dosage: 200 MG , BID
     Route: 065
     Dates: start: 2016
  6. ASCORBIC ACID [Concomitant]
     Active Substance: ASCORBIC ACID
     Indication: Supplementation therapy
     Dosage: 500 MG, UNK
     Route: 065
     Dates: start: 2008
  7. LEVOTHYROXINE [Concomitant]
     Active Substance: LEVOTHYROXINE
     Indication: Thyroid disorder
     Dosage: 88 MG ,UNK
     Route: 065
     Dates: start: 2021
  8. ENALAPRIL MALEATE [Concomitant]
     Active Substance: ENALAPRIL MALEATE
     Indication: Blood pressure abnormal
     Dosage: 2.5 MG, PRN
     Route: 065
  9. ASPIRIN [Concomitant]
     Active Substance: ASPIRIN
     Indication: Prophylaxis
     Dosage: UNK
     Route: 065
  10. CALCIUM ACETATE [Concomitant]
     Active Substance: CALCIUM ACETATE
     Indication: Supplementation therapy
     Dosage: 500 MG, BID
     Route: 065
     Dates: start: 2003
  11. VITAMIN D3 [Concomitant]
     Active Substance: CHOLECALCIFEROL
     Indication: Supplementation therapy
     Dosage: 1000 UNITS, QD
     Route: 065
     Dates: start: 2011
  12. VITAMIN D2 [Concomitant]
     Active Substance: ERGOCALCIFEROL
     Indication: Supplementation therapy
     Dosage: 50,000 UNITS, ONCE WEEKLY
     Route: 065
     Dates: start: 2011
  13. VITAMINS [Concomitant]
     Active Substance: VITAMINS
     Indication: Supplementation therapy
     Dosage: UNK
     Route: 065
     Dates: start: 1993
  14. VITAMIN B12 [Concomitant]
     Active Substance: CYANOCOBALAMIN
     Indication: Supplementation therapy
     Dosage: 5,000 MCG, QD
     Route: 065
     Dates: start: 2013
  15. ATORVASTATIN CALCIUM [Concomitant]
     Active Substance: ATORVASTATIN CALCIUM
     Indication: Blood cholesterol increased
     Dosage: 10 MG, AT NIGHT
     Route: 065
     Dates: start: 2013
  16. COQ10 PLUS [Concomitant]
     Indication: Supplementation therapy
     Dosage: 300MG-400MG, DAILY
     Route: 065
     Dates: start: 2016
  17. ZINC [Concomitant]
     Active Substance: ZINC
     Indication: Supplementation therapy
     Dosage: 50 MG, QD
     Route: 065
     Dates: start: 2020
  18. HYSSOP [Concomitant]
     Active Substance: HYSSOPUS OFFICINALIS FLOWERING TOP
     Indication: Supplementation therapy
     Dosage: UNK
     Route: 065
     Dates: start: 2016
  19. KRILL OIL [Concomitant]
     Active Substance: DIETARY SUPPLEMENT\KRILL OIL
     Indication: Supplementation therapy
     Dosage: 1000 MG, UNK
     Route: 065
     Dates: start: 2022
  20. ALIGN [Concomitant]
     Active Substance: BIFIDOBACTERIUM LONGUM SUBSP. INFANTIS
     Indication: Supplementation therapy
     Dosage: UNK
     Route: 065
     Dates: start: 2013
  21. BENEFIBER FIBER SUPPLEMENT [Concomitant]
     Indication: Supplementation therapy
     Dosage: UNK
     Route: 065
     Dates: start: 2008
  22. CALDESENE [Concomitant]
     Active Substance: TALC\ZINC OXIDE
     Indication: Supplementation therapy
     Dosage: UNK
     Route: 065
  23. DESITIN [ZINC OXIDE] [Concomitant]
     Indication: Rash
     Dosage: UNK
     Route: 065

REACTIONS (17)
  - Lupus-like syndrome [Not Recovered/Not Resolved]
  - Fall [Recovered/Resolved]
  - Dizziness [Not Recovered/Not Resolved]
  - Dry eye [Not Recovered/Not Resolved]
  - Nasal dryness [Not Recovered/Not Resolved]
  - Dry throat [Not Recovered/Not Resolved]
  - Dry mouth [Not Recovered/Not Resolved]
  - Testicular disorder [Not Recovered/Not Resolved]
  - Testicular swelling [Not Recovered/Not Resolved]
  - Chest pain [Unknown]
  - Headache [Unknown]
  - Back pain [Not Recovered/Not Resolved]
  - Insomnia [Recovering/Resolving]
  - Hypersensitivity [Unknown]
  - Drug ineffective for unapproved indication [Unknown]
  - Incorrect product administration duration [Recovered/Resolved]
  - Inappropriate schedule of product administration [Recovered/Resolved]

NARRATIVE: CASE EVENT DATE: 20210101
